FAERS Safety Report 26138024 (Version 1)
Quarter: 2025Q4

REPORT INFORMATION
  Report Type: Spontaneous
  Country: EU (occurrence: EU)
  Receive Date: 20251210
  Receipt Date: 20251210
  Transmission Date: 20260117
  Serious: Yes (Hospitalization)
  Sender: HETERO
  Company Number: None

PATIENT
  Age: 73 Year
  Sex: Male

DRUGS (10)
  1. BISOPROLOL [Suspect]
     Active Substance: BISOPROLOL
     Indication: Atrial fibrillation
     Dosage: 2.5 MILLIGRAM, QD
     Route: 048
     Dates: start: 20190223, end: 20240425
  2. ENALAPRIL [Suspect]
     Active Substance: ENALAPRIL
     Indication: Hypertension
     Dosage: 2.5 MILLIGRAM, QD
     Route: 048
     Dates: start: 20221122, end: 20240425
  3. CELECREM [Concomitant]
     Indication: Dermatitis
     Dosage: QD (1.0 APLIC C/24 H)
     Route: 065
     Dates: start: 20150514
  4. ATROALDO [Concomitant]
     Indication: Bronchitis chronic
     Dosage: 40 MICROGRAM, QID
     Route: 065
     Dates: start: 20201026
  5. ATORVASTATIN [Concomitant]
     Active Substance: ATORVASTATIN
     Indication: Myocardial ischaemia
     Dosage: 40 MICROGRAM
     Route: 048
     Dates: start: 20170816
  6. CHOLECALCIFEROL [Concomitant]
     Active Substance: CHOLECALCIFEROL
     Indication: Vitamin D deficiency
     Dosage: 25000 INTERNATIONAL UNIT (C/15 DIAS)
     Route: 048
     Dates: start: 20191009
  7. ELIQUIS [Concomitant]
     Active Substance: APIXABAN
     Indication: Atrial fibrillation
     Dosage: 5 MILLIGRAM, BID
     Route: 048
     Dates: start: 20230728
  8. PANTOPRAZOL NORMON [Concomitant]
     Indication: Colostomy
     Dosage: 20 MILLIGRAM PER DECILITRE
     Route: 048
     Dates: start: 20250205
  9. OLODATEROL HYDROCHLORIDE\TIOTROPIUM BROMIDE MONOHYDRATE [Concomitant]
     Active Substance: OLODATEROL HYDROCHLORIDE\TIOTROPIUM BROMIDE MONOHYDRATE
     Indication: Bronchitis chronic
     Dosage: QD (2.0 PUFF C/24 H)
     Route: 065
     Dates: start: 20230819
  10. DUTASTERIDE\TAMSULOSIN HYDROCHLORIDE [Concomitant]
     Active Substance: DUTASTERIDE\TAMSULOSIN HYDROCHLORIDE
     Indication: Benign prostatic hyperplasia
     Dosage: 1.0 CAPS CE
     Route: 048
     Dates: start: 20250517

REACTIONS (3)
  - Hypotension [Recovered/Resolved]
  - Bradycardia [Recovered/Resolved]
  - Off label use [Unknown]

NARRATIVE: CASE EVENT DATE: 20240425
